FAERS Safety Report 5232314-X (Version None)
Quarter: 2007Q1

REPORT INFORMATION
  Report Type: 
  Country: None (occurrence: None)
  Receive Date: 20070207
  Receipt Date: 20070201
  Transmission Date: 20070707
  Serious: Yes (Death)
  Sender: FDA-Public Use
  Company Number: PHBS2007JP01964

PATIENT
  Age: 56 Year
  Sex: Female

DRUGS (2)
  1. NEORAL [Suspect]
     Indication: MYASTHENIA GRAVIS
     Dosage: 150 MG/D
     Route: 048
     Dates: start: 20060921
  2. PREDONINE [Concomitant]
     Indication: MYASTHENIA GRAVIS
     Dosage: 12.5 MG/D
     Route: 048
     Dates: start: 20060728

REACTIONS (2)
  - DEATH [None]
  - DIARRHOEA [None]
